FAERS Safety Report 9833851 (Version 1)
Quarter: 2014Q1

REPORT INFORMATION
  Report Type: Spontaneous
  Country: US (occurrence: US)
  Receive Date: 20140122
  Receipt Date: 20140122
  Transmission Date: 20141002
  Serious: No
  Sender: FDA-Public Use
  Company Number: US-BIOGENIDEC-2014BI005119

PATIENT
  Age: 63 Year
  Sex: Female

DRUGS (3)
  1. TECFIDERA [Suspect]
     Indication: MULTIPLE SCLEROSIS
  2. TECFIDERA [Suspect]
     Indication: MULTIPLE SCLEROSIS
     Route: 048
  3. TECFIDERA [Suspect]
     Indication: MULTIPLE SCLEROSIS
     Route: 048
     Dates: start: 20131201

REACTIONS (7)
  - Asthenia [Unknown]
  - Fatigue [Unknown]
  - Mobility decreased [Recovered/Resolved]
  - Urinary incontinence [Unknown]
  - Cystitis [Unknown]
  - Prescribed underdose [Recovered/Resolved]
  - Abdominal discomfort [Unknown]
